FAERS Safety Report 12443056 (Version 1)
Quarter: 2016Q2

REPORT INFORMATION
  Report Type: Spontaneous
  Country: US (occurrence: None)
  Receive Date: 20160606
  Receipt Date: 20160606
  Transmission Date: 20160815
  Serious: Yes (Other)
  Sender: FDA-Public Use
  Company Number: None

PATIENT
  Age: 23 Year
  Sex: Female
  Weight: 101.15 kg

DRUGS (5)
  1. PRENATAL WITH FOLIC ACID [Concomitant]
  2. ZECUITY [Suspect]
     Active Substance: SUMATRIPTAN SUCCINATE
     Indication: MIGRAINE
     Dosage: 4 PATCH (ES)  AS NEEDED  APPLIED TO A SURFACE, USUALLY THE SKIN
     Route: 062
     Dates: start: 20160601, end: 20160601
  3. ONDANSATRON [Concomitant]
  4. NAPROXEN. [Concomitant]
     Active Substance: NAPROXEN
  5. SUMAOTRIPTAN [Concomitant]

REACTIONS (5)
  - Application site pain [None]
  - Application site erythema [None]
  - Hyperaesthesia [None]
  - Pruritus [None]
  - Pain [None]

NARRATIVE: CASE EVENT DATE: 20160601
